FAERS Safety Report 23481153 (Version 1)
Quarter: 2024Q1

REPORT INFORMATION
  Report Type: Spontaneous
  Country: CN (occurrence: CN)
  Receive Date: 20240205
  Receipt Date: 20240205
  Transmission Date: 20240409
  Serious: Yes (Hospitalization, Other)
  Sender: FDA-Public Use
  Company Number: CN-BAYER-2024A016829

PATIENT
  Age: 72 Year
  Sex: Female
  Weight: 75 kg

DRUGS (3)
  1. GLUCOBAY [Suspect]
     Active Substance: ACARBOSE
     Indication: Type 2 diabetes mellitus
     Dosage: 0.1 G, TID
     Route: 048
     Dates: start: 20230701, end: 20240125
  2. GLICLAZIDE [Suspect]
     Active Substance: GLICLAZIDE
     Indication: Type 2 diabetes mellitus
     Dosage: 60 MG, QD
     Route: 048
     Dates: start: 20230701, end: 20240125
  3. DAPAGLIFLOZIN [Suspect]
     Active Substance: DAPAGLIFLOZIN
     Indication: Type 2 diabetes mellitus
     Dosage: 10 MG, QD
     Route: 048
     Dates: start: 20230701, end: 20240125

REACTIONS (15)
  - Diabetic ketoacidosis [Recovered/Resolved]
  - Nephrolithiasis [None]
  - Cholecystitis [None]
  - Pancreatic atrophy [None]
  - Hepatic atrophy [None]
  - Decreased appetite [Recovered/Resolved]
  - Abdominal pain upper [Recovered/Resolved]
  - Nausea [Recovered/Resolved]
  - Vomiting [Recovered/Resolved]
  - Respiratory rate increased [None]
  - Blood pressure increased [None]
  - Chronic gastritis [None]
  - Oesophagitis [None]
  - Carbohydrate antigen 19-9 increased [None]
  - Hepatic calcification [None]

NARRATIVE: CASE EVENT DATE: 20240101
